FAERS Safety Report 12979866 (Version 3)
Quarter: 2017Q1

REPORT INFORMATION
  Report Type: Report from Study
  Country: US (occurrence: US)
  Receive Date: 20161128
  Receipt Date: 20170330
  Transmission Date: 20170428
  Serious: Yes (Other)
  Sender: FDA-Public Use
  Company Number: US-MALLINCKRODT-T201605957

PATIENT
  Age: 59 Year
  Sex: Male

DRUGS (1)
  1. REPOSITORY CORTICOTROPIN INJECTION [Suspect]
     Active Substance: CORTICOTROPIN
     Indication: DERMATOMYOSITIS
     Dosage: 80U/1ML, TWICE WEEKLY (MON + THU)
     Route: 058
     Dates: start: 20151001

REACTIONS (4)
  - Blood test abnormal [Recovering/Resolving]
  - Diabetes mellitus [Unknown]
  - Asthenia [Unknown]
  - Insomnia [Unknown]

NARRATIVE: CASE EVENT DATE: 201511
